FAERS Safety Report 11929594 (Version 1)
Quarter: 2016Q1

REPORT INFORMATION
  Report Type: Spontaneous
  Country: US (occurrence: None)
  Receive Date: 20160119
  Receipt Date: 20160119
  Transmission Date: 20160526
  Serious: Yes (Other)
  Sender: FDA-Public Use
  Company Number: None

PATIENT
  Age: 59 Year
  Sex: Female
  Weight: 90.72 kg

DRUGS (4)
  1. LEVOTHYROXINE. [Concomitant]
     Active Substance: LEVOTHYROXINE
  2. GABAPENTIN 300MG UNKNOWN [Suspect]
     Active Substance: GABAPENTIN
     Indication: SCIATICA
     Route: 048
     Dates: start: 20160107, end: 20160114
  3. FLUOXITENE [Concomitant]
  4. HCTZ [Concomitant]
     Active Substance: HYDROCHLOROTHIAZIDE

REACTIONS (12)
  - Tic [None]
  - Dyskinesia [None]
  - Paraesthesia [None]
  - Dry mouth [None]
  - Amnesia [None]
  - Therapy cessation [None]
  - Peripheral swelling [None]
  - Muscle twitching [None]
  - Discomfort [None]
  - Sensory disturbance [None]
  - Burning sensation [None]
  - Malaise [None]

NARRATIVE: CASE EVENT DATE: 20160114
